FAERS Safety Report 17995622 (Version 5)
Quarter: 2025Q2

REPORT INFORMATION
  Report Type: Spontaneous
  Country: JP (occurrence: JP)
  Receive Date: 20200708
  Receipt Date: 20250519
  Transmission Date: 20250717
  Serious: Yes (Other)
  Sender: PFIZER
  Company Number: JP-PFIZER INC-2020255281

PATIENT
  Age: 58 Year
  Sex: Female

DRUGS (7)
  1. EPIRUBICIN HYDROCHLORIDE [Suspect]
     Active Substance: EPIRUBICIN HYDROCHLORIDE
     Indication: Breast cancer stage III
     Route: 042
  2. ALPRAZOLAM [Suspect]
     Active Substance: ALPRAZOLAM
     Indication: Anxiety
     Dosage: 0.4 MG, 2X/DAY
  3. CYCLOPHOSPHAMIDE [Suspect]
     Active Substance: CYCLOPHOSPHAMIDE
     Indication: Breast cancer stage III
     Route: 042
  4. PEGFILGRASTIM [Suspect]
     Active Substance: PEGFILGRASTIM
     Indication: Breast cancer stage III
     Route: 058
  5. SULPIRIDE [Suspect]
     Active Substance: SULPIRIDE
     Indication: Anxiety
     Dosage: 50 MG, 2X/DAY
  6. FAMOTIDINE [Suspect]
     Active Substance: FAMOTIDINE
     Indication: Anxiety
     Dosage: 10 MG, 2X/DAY
  7. TIZANIDINE [Suspect]
     Active Substance: TIZANIDINE
     Indication: Anxiety
     Dosage: 1 MG, 2X/DAY

REACTIONS (3)
  - Atrioventricular block complete [Unknown]
  - Torsade de pointes [Recovered/Resolved]
  - Electrocardiogram QT prolonged [Recovered/Resolved]
